FAERS Safety Report 8110326-6 (Version None)
Quarter: 2012Q1

REPORT INFORMATION
  Report Type: 
  Country: None (occurrence: None)
  Receive Date: 20120202
  Receipt Date: 20120125
  Transmission Date: 20120608
  Serious: Yes (Hospitalization)
  Sender: FDA-Public Use
  Company Number: US-ABBOTT-12P-163-0898133-00

PATIENT
  Sex: Male

DRUGS (1)
  1. HYDROCODONE BITARTRATE [Suspect]
     Indication: PRODUCT USED FOR UNKNOWN INDICATION

REACTIONS (5)
  - VISUAL IMPAIRMENT [None]
  - SYNCOPE [None]
  - MIGRAINE [None]
  - HEADACHE [None]
  - PHOTOPHOBIA [None]
